FAERS Safety Report 6962256-0 (Version None)
Quarter: 2010Q3

REPORT INFORMATION
  Report Type: 
  Country: None (occurrence: None)
  Receive Date: 20100901
  Receipt Date: 20100901
  Transmission Date: 20110219
  Serious: Yes (Death)
  Sender: FDA-Public Use
  Company Number: None

PATIENT
  Age: 24 Year
  Sex: Male

DRUGS (2)
  1. WARFARIN SODIUM [Suspect]
     Indication: SURGERY
     Dosage: 6MG DAILY PO
     Route: 048
     Dates: start: 20100330, end: 20100404
  2. DIFLUCAN [Suspect]
     Indication: FUNGAL INFECTION
     Dosage: 200MG DAILY PO
     Route: 048
     Dates: start: 20100303, end: 20100404

REACTIONS (1)
  - CEREBRAL HAEMORRHAGE [None]
